FAERS Safety Report 7620155-5 (Version None)
Quarter: 2011Q3

REPORT INFORMATION
  Report Type: 
  Country: None (occurrence: None)
  Receive Date: 20110719
  Receipt Date: 20110714
  Transmission Date: 20111222
  Serious: Yes (Death, Other)
  Sender: FDA-Public Use
  Company Number: US-TEVA-290542USA

PATIENT
  Sex: Male

DRUGS (2)
  1. CLARAVIS [Suspect]
     Dosage: 80 MILLIGRAM; ALTERNATING
  2. CLARAVIS [Suspect]
     Dosage: ALTERNATING 1 PER DAY/TWO PER DAY

REACTIONS (1)
  - COMPLETED SUICIDE [None]
